FAERS Safety Report 5419556-5 (Version None)
Quarter: 2007Q3

REPORT INFORMATION
  Report Type: 
  Country: None (occurrence: None)
  Receive Date: 20070718
  Receipt Date: 20060830
  Transmission Date: 20080115
  Serious: Yes (Hospitalization, Other)
  Sender: FDA-Public Use
  Company Number: 2006108489

PATIENT
  Sex: Male
  Weight: 124.7392 kg

DRUGS (1)
  1. CELEBREX [Suspect]
     Dosage: (3 IN 1 D)

REACTIONS (2)
  - ANGINA UNSTABLE [None]
  - CARDIAC FAILURE CONGESTIVE [None]
